FAERS Safety Report 6923145-0 (Version None)
Quarter: 2010Q3

REPORT INFORMATION
  Report Type: 
  Country: None (occurrence: None)
  Receive Date: 20100813
  Receipt Date: 20100721
  Transmission Date: 20110219
  Serious: Yes (Hospitalization)
  Sender: FDA-Public Use
  Company Number: SE-ROCHE-683632

PATIENT
  Sex: Female

DRUGS (1)
  1. TOCILIZUMAB [Suspect]
     Indication: RHEUMATOID ARTHRITIS
     Dosage: DRUG NAME WAS REPORTED AS ROACTEMRA 20 MG/ML.
     Route: 042
     Dates: start: 20090508, end: 20091029

REACTIONS (1)
  - ANGINA PECTORIS [None]
